FAERS Safety Report 6810653-6 (Version None)
Quarter: 2010Q2

REPORT INFORMATION
  Report Type: 
  Country: None (occurrence: None)
  Receive Date: 20100629
  Receipt Date: 20100629
  Transmission Date: 20101027
  Serious: Yes (Hospitalization)
  Sender: FDA-Public Use
  Company Number: None

PATIENT
  Age: 79 Year
  Sex: Male
  Weight: 61.6892 kg

DRUGS (1)
  1. ZEMPLAR [Suspect]
     Indication: NEOPLASM MALIGNANT
     Dosage: 1 MCG QD PO
     Route: 048
     Dates: start: 20100602, end: 20100615

REACTIONS (11)
  - ATRIAL FIBRILLATION [None]
  - BODY TEMPERATURE INCREASED [None]
  - CONFUSIONAL STATE [None]
  - DEHYDRATION [None]
  - FALL [None]
  - FLUSHING [None]
  - HEAD INJURY [None]
  - LACERATION [None]
  - PNEUMONIA [None]
  - SYNCOPE [None]
  - TACHYCARDIA [None]
